FAERS Safety Report 7327636-2 (Version None)
Quarter: 2011Q1

REPORT INFORMATION
  Report Type: 
  Country: None (occurrence: None)
  Receive Date: 20110303
  Receipt Date: 20110221
  Transmission Date: 20110831
  Serious: Yes (Life-Threatening)
  Sender: FDA-Public Use
  Company Number: ES-CELGENEUS-144-20785-11022485

PATIENT
  Sex: Male
  Weight: 72 kg

DRUGS (3)
  1. THALIDOMIDE [Suspect]
     Indication: MULTIPLE MYELOMA
     Dosage: 100 MILLIGRAM
     Route: 048
     Dates: start: 20090323, end: 20100705
  2. VELCADE [Suspect]
     Indication: MULTIPLE MYELOMA
     Dosage: 2.2 MILLIGRAM
     Route: 051
     Dates: start: 20090323, end: 20100416
  3. VELCADE [Suspect]
     Dosage: 2.2 MILLIGRAM
     Route: 051
     Dates: end: 20100713

REACTIONS (1)
  - ACUTE MYELOID LEUKAEMIA [None]
